FAERS Safety Report 11346323 (Version 1)
Quarter: 2015Q3

REPORT INFORMATION
  Report Type: Report from Study
  Country: US (occurrence: US)
  Receive Date: 20150806
  Receipt Date: 20150806
  Transmission Date: 20151125
  Serious: Yes (Other)
  Sender: FDA-Public Use
  Company Number: US-SA-2015SA115030

PATIENT
  Age: 29 Year
  Sex: Female

DRUGS (1)
  1. LEMTRADA [Suspect]
     Active Substance: ALEMTUZUMAB
     Indication: MULTIPLE SCLEROSIS RELAPSE
     Route: 041
     Dates: start: 20150629, end: 20150703

REACTIONS (3)
  - Therapeutic response decreased [Unknown]
  - Condition aggravated [Unknown]
  - Hemiparesis [Unknown]

NARRATIVE: CASE EVENT DATE: 201507
